FAERS Safety Report 9200084 (Version 5)
Quarter: 2013Q3

REPORT INFORMATION
  Report Type: Report from Study
  Country: CZ (occurrence: CZ)
  Receive Date: 20130329
  Receipt Date: 20130701
  Transmission Date: 20140515
  Serious: Yes (Hospitalization)
  Sender: FDA-Public Use
  Company Number: CZ-PFIZER INC-2013092477

PATIENT
  Age: 60 Year
  Sex: Male
  Weight: 62.7 kg

DRUGS (3)
  1. TEMSIROLIMUS [Suspect]
     Indication: MANTLE CELL LYMPHOMA
     Dosage: 175 MG, WEEKLY
     Route: 042
     Dates: start: 20130130, end: 20130206
  2. TEMSIROLIMUS [Suspect]
     Dosage: 75 MG, WEEKLY
     Dates: start: 20130221, end: 20130228
  3. DESIPRAMINE [Suspect]
     Indication: MANTLE CELL LYMPHOMA
     Dosage: 50 MG, WEEKLY FOR 2 WEEKS
     Route: 048
     Dates: start: 20130123, end: 20130130

REACTIONS (1)
  - Influenza [Recovered/Resolved]
